FAERS Safety Report 17438497 (Version 1)
Quarter: 2020Q1

REPORT INFORMATION
  Report Type: Spontaneous
  Country: US (occurrence: US)
  Receive Date: 20200220
  Receipt Date: 20200220
  Transmission Date: 20200409
  Serious: No
  Sender: FDA-Public Use
  Company Number: US-009507513-2002USA007252

PATIENT
  Sex: Male

DRUGS (1)
  1. PROVENTIL [Suspect]
     Active Substance: ALBUTEROL
     Indication: ASTHMA
     Dosage: DOSE: 2 PUFFS EVERY 4-6 HOURS AS NEEDED; PACKAGE SIZE: 6.7 GRAMS 200 METERED INHALATIONS

REACTIONS (2)
  - Product quality issue [Unknown]
  - Poor quality device used [Unknown]
